FAERS Safety Report 4830928-X (Version None)
Quarter: 2005Q4

REPORT INFORMATION
  Report Type: 
  Country: None (occurrence: None)
  Receive Date: 20051114
  Receipt Date: 20051102
  Transmission Date: 20060501
  Serious: Yes (Other)
  Sender: FDA-Public Use
  Company Number: 2005150588

PATIENT
  Age: 59 Year
  Sex: Female

DRUGS (21)
  1. ATORVASTATIN CALCIUM [Suspect]
     Indication: HYPERCHOLESTEROLAEMIA
     Dosage: 40 MG (1 IN 1 D), ORAL
     Route: 048
  2. DILTIAZEM [Suspect]
     Indication: ILL-DEFINED DISORDER
  3. ALUMINUM HYDROXIDE AND MAGNESIUM TRISILICATE [Concomitant]
  4. NUELIN (THEOPHYLLINE) [Concomitant]
  5. OMEPRAZOLE [Concomitant]
  6. ALBUTEROL [Concomitant]
  7. SALMETEROL (SALMETEROL) [Concomitant]
  8. TRAZODONE HCL [Concomitant]
  9. IPRATROPIUM BROMIDE [Concomitant]
  10. ALLOPURINOL [Concomitant]
  11. PARACETAMOL (PARACETAMOL) [Concomitant]
  12. DOCUSATE SODIUM (DOCUSATE SODIUM) [Concomitant]
  13. DILTIAZEM HCL [Concomitant]
  14. ISOSORBIDE MONONITRATE [Concomitant]
  15. ACETYLSALICYLIC ACID SRT [Concomitant]
  16. GLYCERYL TRINITRATE (GLYCERYL TRINITRATE) [Concomitant]
  17. LOSARTAN (LOSATAN) [Concomitant]
  18. DOXAZOSIN (DOXAZOSIN) [Concomitant]
  19. OXYGEN (OXYGEN) [Concomitant]
  20. BECLOMETHASONE (BECLMETASONE) [Concomitant]
  21. BENDROFLUMETHIAZIDE (BENDROFLUMETHIAZIDE) [Concomitant]

REACTIONS (2)
  - DRUG INTERACTION [None]
  - MYOSITIS [None]
